FAERS Safety Report 6453356-2 (Version None)
Quarter: 2009Q4

REPORT INFORMATION
  Report Type: 
  Country: None (occurrence: None)
  Receive Date: 20091124
  Receipt Date: 20091113
  Transmission Date: 20100525
  Serious: Yes (Death, Life-Threatening, Hospitalization, Other)
  Sender: FDA-Public Use
  Company Number: US-BAXTER-2009BH014519

PATIENT
  Age: 9 Year
  Sex: Female
  Weight: 32 kg

DRUGS (10)
  1. HEPARIN SODIUM INJECTION [Suspect]
     Indication: INTRAVENOUS CATHETER MANAGEMENT
     Route: 042
     Dates: start: 20070814, end: 20070923
  2. DEXAMETHASONE [Suspect]
     Indication: DRUG USE FOR UNKNOWN INDICATION
     Route: 042
     Dates: start: 20070815, end: 20070817
  3. DEXAMETHASONE [Suspect]
     Route: 042
     Dates: start: 20070818
  4. CYCLOPHOSPHAMIDE [Suspect]
     Indication: T-CELL LYMPHOMA
     Route: 042
     Dates: start: 20070818, end: 20070819
  5. MESNA [Suspect]
     Indication: T-CELL LYMPHOMA
     Route: 042
     Dates: start: 20070818, end: 20070819
  6. IMMUNE GLOBULIN INTRAVENOUS (HUMAN) [Suspect]
     Indication: DRUG USE FOR UNKNOWN INDICATION
     Route: 042
     Dates: start: 20070814
  7. METHOTREXATE [Suspect]
     Indication: PROPHYLAXIS AGAINST GRAFT VERSUS HOST DISEASE
     Route: 042
     Dates: start: 20070822, end: 20070822
  8. METHOTREXATE [Suspect]
     Route: 042
     Dates: start: 20070824, end: 20070824
  9. METHOTREXATE [Suspect]
     Route: 042
     Dates: start: 20070827, end: 20070827
  10. METHOTREXATE [Suspect]
     Route: 042
     Dates: start: 20070901, end: 20070901

REACTIONS (20)
  - ACUTE RESPIRATORY DISTRESS SYNDROME [None]
  - ASCITES [None]
  - CARDIAC ARREST [None]
  - DIARRHOEA [None]
  - DIFFUSE ALVEOLAR DAMAGE [None]
  - ENGRAFTMENT SYNDROME [None]
  - EPISTAXIS [None]
  - FEBRILE NEUTROPENIA [None]
  - HODGKIN'S DISEASE [None]
  - HYPOTENSION [None]
  - LETHARGY [None]
  - MOUTH HAEMORRHAGE [None]
  - NAUSEA [None]
  - PANCYTOPENIA [None]
  - PORTAL HYPERTENSION [None]
  - RESPIRATORY FAILURE [None]
  - STAPHYLOCOCCAL INFECTION [None]
  - STOMATITIS [None]
  - UNRESPONSIVE TO STIMULI [None]
  - VOMITING [None]
